FAERS Safety Report 12255494 (Version 1)
Quarter: 2016Q2

REPORT INFORMATION
  Report Type: Spontaneous
  Country: US (occurrence: None)
  Receive Date: 20160411
  Receipt Date: 20160411
  Transmission Date: 20160815
  Serious: Yes (Death, Life-Threatening, Hospitalization)
  Sender: FDA-Public Use
  Company Number: None

PATIENT
  Age: 24 Month
  Sex: Male
  Weight: 11 kg

DRUGS (5)
  1. DINUTUXIMAB, 17.5MG/5ML UNITED THERAPEUTICS [Suspect]
     Active Substance: DINUTUXIMAB
     Indication: NEUROBLASTOMA
     Route: 041
     Dates: start: 20160307, end: 20160310
  2. VANCOMYCIN [Concomitant]
     Active Substance: VANCOMYCIN
  3. GM-CSF (SARGRAMOSTIM) [Concomitant]
  4. ZENATANE [Suspect]
     Active Substance: ISOTRETINOIN
     Indication: NEUROBLASTOMA
     Route: 048
     Dates: start: 20160315, end: 20160322
  5. ESOMEPRAZOLE [Concomitant]
     Active Substance: ESOMEPRAZOLE

REACTIONS (14)
  - Rash [None]
  - Neuropathy peripheral [None]
  - Depressed level of consciousness [None]
  - Cerebral atrophy [None]
  - Hypertension [None]
  - Clostridium test positive [None]
  - Generalised tonic-clonic seizure [None]
  - Hypertonia [None]
  - Agitation [None]
  - Encephalopathy [None]
  - Irritability [None]
  - Diarrhoea [None]
  - Pruritus [None]
  - Dyskinesia [None]

NARRATIVE: CASE EVENT DATE: 20160325
